FAERS Safety Report 4710100-4 (Version None)
Quarter: 2005Q3

REPORT INFORMATION
  Report Type: 
  Country: None (occurrence: None)
  Receive Date: 20050707
  Receipt Date: 20050707
  Transmission Date: 20060218
  Serious: No
  Sender: FDA-Public Use
  Company Number: None

PATIENT
  Age: 44 Year
  Sex: Female
  Weight: 65.7 kg

DRUGS (8)
  1. GREER RAGWEED POLLEN ALLERGENIC EXTRACT, IND#11986 [Suspect]
     Indication: HYPERSENSITIVITY
     Dosage: 0.22U/ML, QD, SL
     Route: 060
     Dates: start: 20050504, end: 20050620
  2. LORATADINE [Concomitant]
  3. MULTI-VITAMIN [Concomitant]
  4. GLUCOSAMINE CHONDROITIN [Concomitant]
  5. PEPCID AC [Concomitant]
  6. IBUPROFEN [Concomitant]
  7. NUVARING [Concomitant]
  8. NAFCON A [Concomitant]

REACTIONS (7)
  - ASTHENIA [None]
  - MIGRAINE [None]
  - MOVEMENT DISORDER [None]
  - NERVOUS SYSTEM DISORDER [None]
  - SENSATION OF HEAVINESS [None]
  - STRABISMUS [None]
  - VISUAL DISTURBANCE [None]
